FAERS Safety Report 7036010-8 (Version None)
Quarter: 2010Q4

REPORT INFORMATION
  Report Type: 
  Country: None (occurrence: None)
  Receive Date: 20101007
  Receipt Date: 20101007
  Transmission Date: 20110411
  Serious: Yes (Other)
  Sender: FDA-Public Use
  Company Number: None

PATIENT
  Sex: Male

DRUGS (1)
  1. MYFORTIC [Suspect]
     Indication: TRANSPLANT
     Dosage: 360MG EVERY 12HRS BY MOUTH
     Route: 048

REACTIONS (1)
  - DIARRHOEA [None]
